FAERS Safety Report 5390175-2 (Version None)
Quarter: 2007Q3

REPORT INFORMATION
  Report Type: 
  Country: None (occurrence: None)
  Receive Date: 20070716
  Receipt Date: 20070716
  Transmission Date: 20080115
  Serious: Yes (Other)
  Sender: FDA-Public Use
  Company Number: None

PATIENT
  Age: 51 Year
  Sex: Female
  Weight: 90.7194 kg

DRUGS (2)
  1. LEVAQUIN [Suspect]
     Indication: BRONCHITIS
     Dosage: 750  1 TAB DAILY PO
     Route: 048
     Dates: start: 20070518, end: 20070528
  2. LEVAQUIN [Suspect]
     Indication: SINUSITIS
     Dosage: 750  1 TAB DAILY PO
     Route: 048
     Dates: start: 20070518, end: 20070528

REACTIONS (1)
  - ANOSMIA [None]
